FAERS Safety Report 8543385-7 (Version None)
Quarter: 2012Q3

REPORT INFORMATION
  Report Type: 
  Country: None (occurrence: None)
  Receive Date: 20120727
  Receipt Date: 20120720
  Transmission Date: 20120928
  Serious: Yes (Hospitalization)
  Sender: FDA-Public Use
  Company Number: PHHY2012CA052225

PATIENT
  Sex: Female

DRUGS (2)
  1. CYCLOBENAZPRINE [Suspect]
  2. ZOLEDRONOC ACID [Suspect]
     Indication: OSTEOPOROSIS
     Dosage: 5 MG, UNK
     Route: 042
     Dates: start: 20110803

REACTIONS (3)
  - DRUG-INDUCED LIVER INJURY [None]
  - MUSCULAR WEAKNESS [None]
  - ABDOMINAL PAIN UPPER [None]
